FAERS Safety Report 7199285-0 (Version None)
Quarter: 2010Q4

REPORT INFORMATION
  Report Type: 
  Country: None (occurrence: None)
  Receive Date: 20101228
  Receipt Date: 20101215
  Transmission Date: 20110411
  Serious: Yes (Other)
  Sender: FDA-Public Use
  Company Number: US-JNJFOC-20100806911

PATIENT
  Sex: Male

DRUGS (2)
  1. LEVAQUIN [Suspect]
     Indication: COLLAPSE OF LUNG
     Route: 048
  2. LEVAQUIN [Suspect]
     Indication: EMPYEMA
     Route: 048

REACTIONS (4)
  - EYE SWELLING [None]
  - HYPOAESTHESIA [None]
  - MYALGIA [None]
  - TENDON RUPTURE [None]
